FAERS Safety Report 7996462-3 (Version None)
Quarter: 2011Q4

REPORT INFORMATION
  Report Type: 
  Country: None (occurrence: None)
  Receive Date: 20111220
  Receipt Date: 20111203
  Transmission Date: 20120403
  Serious: Yes (Hospitalization, Other)
  Sender: FDA-Public Use
  Company Number: PHHY2011DE106358

PATIENT
  Sex: Female
  Weight: 81 kg

DRUGS (19)
  1. VALDOXAN [Suspect]
     Indication: DEPRESSION
     Dosage: 25 MG/DAY
     Route: 048
     Dates: start: 20090101, end: 20100225
  2. GLIMEPIRIDE [Concomitant]
     Indication: DIABETES MELLITUS
     Dosage: 3 MG/DAY
     Route: 048
     Dates: start: 20030801, end: 20110901
  3. MOXONIDINE [Concomitant]
     Indication: HYPERTENSION
     Dosage: 0.4 MG/DAY
     Route: 048
     Dates: start: 20100401
  4. HYDROCHLOROTHIAZIDE [Suspect]
     Indication: HYPERTENSION
     Dosage: 25 MG/DAY
     Route: 048
     Dates: start: 20090409
  5. DELIX PLUS [Concomitant]
     Indication: HYPERTENSION
     Dosage: 1 DF, QD
     Route: 048
     Dates: start: 20080101, end: 20100225
  6. INSUMAN COMB [Concomitant]
     Indication: DIABETES MELLITUS
     Dosage: 40 IU/DAY
     Route: 058
     Dates: start: 20110601
  7. CALCIUM CHANNEL BLOCKERS [Concomitant]
     Dosage: UNK
     Dates: start: 20090409
  8. ESCITALOPRAM [Concomitant]
     Indication: DEPRESSION
     Dosage: 10 MG/DAY
     Route: 048
     Dates: start: 20110601, end: 20110901
  9. AMLODIPINE [Concomitant]
     Indication: HYPERTENSION
     Dosage: UNK
     Dates: start: 20090401
  10. JANUMET [Concomitant]
     Indication: DIABETES MELLITUS
     Dosage: 1 DF, QD
     Route: 048
     Dates: start: 20110201
  11. ANTIDEPRESSANTS [Concomitant]
     Indication: DEPRESSION
  12. ALPHA RECEPTOR BLOCKER [Concomitant]
     Dosage: UNK
     Dates: start: 20100430
  13. DILTIAZEM HCL [Concomitant]
     Indication: HYPERTENSION
     Dosage: 90 MG/DAY
     Route: 048
     Dates: start: 20090101, end: 20100225
  14. ACE INHIBITOR NOS [Concomitant]
     Dosage: UNK
     Dates: start: 20100430
  15. RAMIPRIL [Concomitant]
     Indication: HYPERTENSION
     Dosage: 5 MG/DAY
     Route: 048
     Dates: start: 20080901
  16. CLIMOPAX [Concomitant]
     Indication: MENOPAUSE
     Dosage: 1 DF, QD
     Route: 048
     Dates: start: 20030827, end: 20110901
  17. ALISKIREN [Suspect]
     Indication: HYPERTENSION
     Dosage: UNK
     Route: 048
     Dates: start: 20081114, end: 20090409
  18. AMARYL [Concomitant]
     Indication: DIABETES MELLITUS
     Dosage: 1.5 MG/DAY
     Route: 048
     Dates: start: 20080101
  19. INSULIN HUMAN [Concomitant]
     Indication: DIABETES MELLITUS
     Dosage: 38 IU/DAY
     Route: 058
     Dates: start: 20110601

REACTIONS (8)
  - CHRONIC OBSTRUCTIVE PULMONARY DISEASE [None]
  - SPINAL DISORDER [None]
  - OEDEMA [None]
  - CORONARY ARTERY DISEASE [None]
  - SKIN ULCER [None]
  - PSYCHIATRIC SYMPTOM [None]
  - PSYCHOTIC DISORDER [None]
  - DEPRESSION [None]
